FAERS Safety Report 5275023-3 (Version None)
Quarter: 2007Q1

REPORT INFORMATION
  Report Type: 
  Country: None (occurrence: None)
  Receive Date: 20070325
  Receipt Date: 20070312
  Transmission Date: 20070707
  Serious: Yes (Other)
  Sender: FDA-Public Use
  Company Number: JP-JNJFOC-20070106212

PATIENT
  Sex: Male
  Weight: 60 kg

DRUGS (5)
  1. REMICADE [Suspect]
     Route: 042
  2. REMICADE [Suspect]
     Indication: CROHN'S DISEASE
     Route: 042
  3. VALTREX [Concomitant]
     Indication: ANTIVIRAL PROPHYLAXIS
     Route: 048
  4. BROACT [Concomitant]
     Indication: PYREXIA
  5. BROACT [Concomitant]
     Indication: LOWER RESPIRATORY TRACT INFECTION BACTERIAL

REACTIONS (2)
  - HERPES VIRUS INFECTION [None]
  - SEPTIC EMBOLUS [None]
